FAERS Safety Report 16281308 (Version 1)
Quarter: 2019Q2

REPORT INFORMATION
  Report Type: Spontaneous
  Country: US (occurrence: US)
  Receive Date: 20190507
  Receipt Date: 20190507
  Transmission Date: 20190711
  Serious: No
  Sender: FDA-Public Use
  Company Number: US-MYLANLABS-2019M1040204

PATIENT
  Weight: 62 kg

DRUGS (2)
  1. DICYCLOMINE HCL [Concomitant]
     Active Substance: DICYCLOMINE HYDROCHLORIDE
  2. SPIRONOLACTONE. [Suspect]
     Active Substance: SPIRONOLACTONE
     Indication: ACNE
     Dosage: UNK

REACTIONS (4)
  - Abdominal pain upper [Unknown]
  - Skin disorder [Unknown]
  - Abdominal discomfort [Unknown]
  - Product use in unapproved indication [Unknown]
